FAERS Safety Report 7477556-8 (Version None)
Quarter: 2011Q2

REPORT INFORMATION
  Report Type: 
  Country: None (occurrence: None)
  Receive Date: 20110513
  Receipt Date: 20110503
  Transmission Date: 20111010
  Serious: Yes (Other)
  Sender: FDA-Public Use
  Company Number: US-RANBAXY-2011US-44237

PATIENT

DRUGS (2)
  1. AMOXICILLIN [Suspect]
     Indication: LYME DISEASE
     Dosage: 500 MG, UNK, 3 CAP/DAY
     Route: 048
     Dates: start: 20080329, end: 20080819
  2. VALTREX [Concomitant]
     Indication: PRODUCT USED FOR UNKNOWN INDICATION
     Dosage: UNK
     Route: 065

REACTIONS (2)
  - CONGENITAL ANOMALY IN OFFSPRING [None]
  - DRUG EXPOSURE DURING PREGNANCY [None]
